FAERS Safety Report 5639104-4 (Version None)
Quarter: 2008Q1

REPORT INFORMATION
  Report Type: 
  Country: None (occurrence: None)
  Receive Date: 20080226
  Receipt Date: 20080215
  Transmission Date: 20080703
  Serious: Yes (Other)
  Sender: FDA-Public Use
  Company Number: US-ELI_LILLY_AND_COMPANY-US200802003634

PATIENT
  Age: 47 Year
  Sex: Male

DRUGS (6)
  1. CYMBALTA [Suspect]
     Indication: DEPRESSION
     Dosage: 60 MG, UNK
     Dates: start: 20080206
  2. PERCOCET [Concomitant]
     Indication: PAIN
  3. HUMALOG [Concomitant]
     Dosage: UNK, UNK
     Route: 050
     Dates: start: 20060101
  4. AMBIEN [Concomitant]
     Indication: SLEEP DISORDER
  5. BENADRYL [Concomitant]
     Dosage: UNK, AS NEEDED
  6. LIPRAM [Concomitant]
     Indication: PANCREATIC DISORDER

REACTIONS (1)
  - BLOOD GLUCOSE DECREASED [None]
